FAERS Safety Report 9782386 (Version 3)
Quarter: 2014Q3

REPORT INFORMATION
  Report Type: Report from Study
  Country: BR (occurrence: BR)
  Receive Date: 20131226
  Receipt Date: 20140929
  Transmission Date: 20150326
  Serious: Yes (Other)
  Sender: FDA-Public Use
  Company Number: PHHY2013BR150986

PATIENT
  Age: 60 Year
  Sex: Male
  Weight: 90 kg

DRUGS (8)
  1. TESTOSTERONE. [Concomitant]
     Active Substance: TESTOSTERONE
     Dosage: 28 TO 28 DAYS
  2. CORTISONE [Concomitant]
     Active Substance: CORTISONE\HYDROCORTISONE
     Indication: PITUITARY TUMOUR
     Dosage: 1.5 DF (1 DF IN THE MORNING AND HALF A TABLET IN THE AFTERNOON)
     Dates: start: 201302
  3. TESTOSTERONE. [Concomitant]
     Active Substance: TESTOSTERONE
     Indication: ACROMEGALY
     Dosage: 1 DF, EVERY 30 DAYS
     Dates: start: 201301
  4. SANDOSTATIN LAR DEPOT [Suspect]
     Active Substance: OCTREOTIDE ACETATE
     Indication: ACROMEGALY
     Dosage: 1 AMPOULE OF 30 MG, EVERY 28 DAYS
     Dates: start: 201301
  5. SANDOSTATIN LAR DEPOT [Suspect]
     Active Substance: OCTREOTIDE ACETATE
     Dosage: 28 TO 28 DAYS
  6. AAS [Concomitant]
     Active Substance: ASPIRIN
     Indication: ANTICOAGULANT THERAPY
     Dosage: 1 DF, DAY
     Dates: start: 201304
  7. CLOPIDOGREL [Concomitant]
     Active Substance: CLOPIDOGREL BISULFATE
     Indication: ANTICOAGULANT THERAPY
     Dosage: 1 DF, A DAY
     Dates: start: 201304
  8. SANDOSTATIN LAR DEPOT [Suspect]
     Active Substance: OCTREOTIDE ACETATE
     Indication: BLOOD GROWTH HORMONE
     Dosage: 1 AMPOULE OF 20 MG, EVERY 28 DAYS

REACTIONS (1)
  - Infarction [Recovering/Resolving]

NARRATIVE: CASE EVENT DATE: 201304
